FAERS Safety Report 24860763 (Version 2)
Quarter: 2025Q1

REPORT INFORMATION
  Report Type: Spontaneous
  Country: IT (occurrence: IT)
  Receive Date: 20250120
  Receipt Date: 20250126
  Transmission Date: 20250409
  Serious: Yes (Other)
  Sender: CIPLA
  Company Number: IT-MINISAL02-1019565

PATIENT

DRUGS (1)
  1. RIVAROXABAN [Suspect]
     Active Substance: RIVAROXABAN
     Indication: Deep vein thrombosis
     Dosage: 10 MILLIGRAM, QD
     Route: 048

REACTIONS (2)
  - Deep vein thrombosis [Recovered/Resolved]
  - Drug ineffective [Recovered/Resolved]

NARRATIVE: CASE EVENT DATE: 20241010
